FAERS Safety Report 10157438 (Version 1)
Quarter: 2014Q2

REPORT INFORMATION
  Report Type: Spontaneous
  Country: GB (occurrence: GB)
  Receive Date: 20140507
  Receipt Date: 20140507
  Transmission Date: 20141212
  Serious: Yes (Other)
  Sender: FDA-Public Use
  Company Number: GB-B.I. PHARMACEUTICALS,INC./RIDGEFIELD-2014-BI-19722UK

PATIENT
  Age: 69 Year
  Sex: Female
  Weight: 77 kg

DRUGS (14)
  1. PRADAXA [Suspect]
     Indication: ATRIAL FIBRILLATION
     Dosage: 220 MG
     Route: 048
     Dates: start: 20140409, end: 20140411
  2. ADIZEM-XL [Suspect]
     Indication: PRODUCT USED FOR UNKNOWN INDICATION
     Dosage: 240 MG
     Route: 065
  3. ACIDEX SUSPENSION [Concomitant]
     Route: 065
  4. CETIRIZINE [Concomitant]
     Dosage: 10 MG
     Route: 065
  5. CREON [Concomitant]
     Route: 065
  6. IPRATROPIUM BROMIDE [Concomitant]
     Route: 055
  7. IRBESARTAN AND HYDROCHLOROTHIAZIDE [Concomitant]
     Dosage: 1 ANZ
     Route: 065
  8. ISPAGHULA HUSK [Concomitant]
     Indication: CONSTIPATION
     Route: 065
  9. LEVOTHYROXINE SODIUM [Concomitant]
     Dosage: 150 MCG
     Route: 065
  10. LEVOTHYROXINE SODIUM [Concomitant]
     Dosage: 12.5 MCG
     Route: 065
  11. OMEPRAZOLE [Concomitant]
     Dosage: 20 MG
     Route: 065
  12. PARACETAMOL [Concomitant]
     Route: 065
  13. QVAR [Concomitant]
     Dosage: 4 ANZ
     Route: 055
  14. SALBUTAMOL [Concomitant]
     Route: 055

REACTIONS (11)
  - Chest discomfort [Not Recovered/Not Resolved]
  - Dizziness [Not Recovered/Not Resolved]
  - Erythema [Not Recovered/Not Resolved]
  - Feeling hot [Not Recovered/Not Resolved]
  - Palpitations [Not Recovered/Not Resolved]
  - Paraesthesia [Unknown]
  - Abdominal discomfort [Not Recovered/Not Resolved]
  - Throat tightness [Not Recovered/Not Resolved]
  - Fatigue [Not Recovered/Not Resolved]
  - Malaise [Not Recovered/Not Resolved]
  - Vasodilatation [Not Recovered/Not Resolved]
